FAERS Safety Report 9251507 (Version 1)
Quarter: 2013Q1

REPORT INFORMATION
  Report Type: Spontaneous
  Country: US (occurrence: None)
  Receive Date: 20130305
  Receipt Date: 20130305
  Transmission Date: 20140127
  Serious: Yes (Other)
  Sender: FDA-Public Use
  Company Number: 163-21880-12063449

PATIENT
  Age: 71 Year
  Sex: Female
  Weight: 99.79 kg

DRUGS (15)
  1. REVLIMID [Suspect]
     Indication: PLASMA CELL MYELOMA
     Dosage: 25 MG, 1 IN 1 D, PO
     Route: 048
     Dates: start: 201101
  2. ACYCLOVIR (ACICLOVIR) (ACICLOVIR) [Concomitant]
  3. ALLEGRA [Concomitant]
  4. AMBEIN (ZOLPIDEM TARTRATE) [Concomitant]
  5. CALCIUM (CALCIUM) [Concomitant]
  6. DOXYCYCLINE (DOXYCYCLINE) [Concomitant]
  7. FISH OIL (FISH OIL) [Concomitant]
  8. GABAPENTIN (GABAPENTIN) [Concomitant]
  9. GLUCOSAMINE (GLUCOSAMINE) [Concomitant]
  10. IMODIUM (LOPERAMIDE) [Concomitant]
  11. LISINOPRIL (LISINOPRIL) [Concomitant]
  12. METOPROLOL (METOPROLOL) [Concomitant]
  13. VITAMINS [Concomitant]
  14. NEXIUM [Concomitant]
  15. VITAMIN C [Concomitant]

REACTIONS (1)
  - Diarrhoea [None]
